FAERS Safety Report 8561848-5 (Version None)
Quarter: 2012Q3

REPORT INFORMATION
  Report Type: 
  Country: None (occurrence: None)
  Receive Date: 20120802
  Receipt Date: 20120709
  Transmission Date: 20120928
  Serious: No
  Sender: FDA-Public Use
  Company Number: US-AMGEN-USASP2012037382

PATIENT
  Age: 34 Year
  Sex: Female
  Weight: 58.05 kg

DRUGS (2)
  1. ENBREL [Suspect]
     Indication: RHEUMATOID ARTHRITIS
     Dosage: 50 MG, QWK
     Dates: start: 20120601
  2. CLONAZEPAM [Concomitant]
     Indication: INSOMNIA
     Dosage: 0.5 UNK, QHS
     Route: 048
     Dates: start: 20120614

REACTIONS (8)
  - PAIN [None]
  - FATIGUE [None]
  - PYREXIA [None]
  - INFLUENZA LIKE ILLNESS [None]
  - SWELLING [None]
  - NAUSEA [None]
  - HYPERHIDROSIS [None]
  - NASOPHARYNGITIS [None]
